FAERS Safety Report 10639991 (Version 5)
Quarter: 2015Q2

REPORT INFORMATION
  Report Type: Report from Study
  Country: AT (occurrence: AT)
  Receive Date: 20141209
  Receipt Date: 20150408
  Transmission Date: 20150821
  Serious: Yes (Hospitalization, Other)
  Sender: FDA-Public Use
  Company Number: AT-ROCHE-1043227

PATIENT
  Age: 76 Year
  Sex: Female
  Weight: 65 kg

DRUGS (6)
  1. NOVALGIN (AUSTRIA) [Concomitant]
     Route: 065
     Dates: start: 20111219
  2. PASPERTIN (AUSTRIA) [Concomitant]
     Route: 065
     Dates: start: 20111221
  3. SAROTEN [Concomitant]
     Active Substance: AMITRIPTYLINE
     Route: 065
     Dates: start: 20111211
  4. VEMURAFENIB [Suspect]
     Active Substance: VEMURAFENIB
     Indication: METASTATIC MALIGNANT MELANOMA
     Dosage: DATE OF LAST DOSE PRIOR T SAE: 16/FEB/2012
     Route: 048
     Dates: start: 20111222, end: 20120305
  5. PANTOLOC [Concomitant]
     Active Substance: PANTOPRAZOLE SODIUM
     Route: 065
     Dates: start: 20111218
  6. DUROGESIC [Concomitant]
     Active Substance: FENTANYL
     Route: 065
     Dates: start: 20111218

REACTIONS (2)
  - Metastases to meninges [Not Recovered/Not Resolved]
  - Squamous cell carcinoma of skin [Recovered/Resolved]

NARRATIVE: CASE EVENT DATE: 20120216
